FAERS Safety Report 8382768 (Version 2)
Quarter: 2015Q1

REPORT INFORMATION
  Report Type: Report from Study
  Country: US (occurrence: US)
  Receive Date: 20120201
  Receipt Date: 20150226
  Transmission Date: 20150721
  Serious: Yes (Death)
  Sender: FDA-Public Use
  Company Number: US-ROCHE-1035130

PATIENT
  Sex: Female

DRUGS (25)
  1. AVASTIN [Suspect]
     Active Substance: BEVACIZUMAB
     Indication: INVASIVE DUCTAL BREAST CARCINOMA
  2. DECADRON [Concomitant]
     Active Substance: DEXAMETHASONE
  3. PROTONIX (UNITED STATES) [Concomitant]
  4. MS CONTIN [Concomitant]
     Active Substance: MORPHINE SULFATE
     Route: 065
  5. METFORMIN [Concomitant]
     Active Substance: METFORMIN HYDROCHLORIDE
     Route: 065
  6. COUMADINE [Concomitant]
     Active Substance: WARFARIN SODIUM
  7. ALOXI [Concomitant]
     Active Substance: PALONOSETRON HYDROCHLORIDE
  8. REGLAN [Concomitant]
     Active Substance: METOCLOPRAMIDE HYDROCHLORIDE
  9. MORPHINE SULPHATE SR [Concomitant]
  10. MEGACE [Concomitant]
     Active Substance: MEGESTROL ACETATE
  11. PROCRIT [Suspect]
     Active Substance: ERYTHROPOIETIN
     Indication: PRODUCT USED FOR UNKNOWN INDICATION
     Route: 065
  12. ZOFRAN [Concomitant]
     Active Substance: ONDANSETRON HYDROCHLORIDE
  13. FAMVIR [Concomitant]
     Active Substance: FAMCICLOVIR
  14. ABRAXANE [Concomitant]
     Active Substance: PACLITAXEL
  15. NORVASC [Concomitant]
     Active Substance: AMLODIPINE BESYLATE
     Route: 048
  16. ONDANSETRON [Concomitant]
     Active Substance: ONDANSETRON
  17. HEPARIN [Concomitant]
     Active Substance: HEPARIN SODIUM
     Route: 042
  18. LISINOPRIL. [Concomitant]
     Active Substance: LISINOPRIL
     Indication: BLOOD PRESSURE INCREASED
  19. AVASTIN [Suspect]
     Active Substance: BEVACIZUMAB
     Indication: BREAST CANCER
     Route: 065
     Dates: start: 20070209
  20. PHENERGAN [Concomitant]
     Active Substance: PROMETHAZINE HYDROCHLORIDE
  21. COMPAZINE [Concomitant]
     Active Substance: PROCHLORPERAZINE MALEATE
  22. ALLEGRA [Concomitant]
     Active Substance: FEXOFENADINE HYDROCHLORIDE
  23. MIRALAX [Concomitant]
     Active Substance: POLYETHYLENE GLYCOL 3350
  24. NORCO [Concomitant]
     Active Substance: ACETAMINOPHEN\HYDROCODONE BITARTRATE
  25. ATIVAN [Concomitant]
     Active Substance: LORAZEPAM

REACTIONS (18)
  - Drug ineffective [Unknown]
  - Fatigue [Unknown]
  - Constipation [Unknown]
  - Contusion [Unknown]
  - Death [Fatal]
  - Decreased appetite [Unknown]
  - Asthenia [Unknown]
  - Vomiting [Unknown]
  - Injection site pain [Unknown]
  - Injection site pruritus [Unknown]
  - Weight decreased [Unknown]
  - Rash erythematous [Unknown]
  - Blood pressure increased [Unknown]
  - Cough [Unknown]
  - Breakthrough pain [Unknown]
  - Off label use [Unknown]
  - Nausea [Unknown]
  - Injection site erythema [Unknown]
